FAERS Safety Report 8185651-3 (Version None)
Quarter: 2012Q1

REPORT INFORMATION
  Report Type: 
  Country: None (occurrence: None)
  Receive Date: 20120305
  Receipt Date: 20120224
  Transmission Date: 20120608
  Serious: Yes (Other)
  Sender: FDA-Public Use
  Company Number: CHPA2012US004045

PATIENT
  Age: 72 Year
  Sex: Female

DRUGS (2)
  1. PREVACID 24 HR [Suspect]
     Indication: GASTROOESOPHAGEAL REFLUX DISEASE
     Dosage: 15 MG, QD
     Route: 048
     Dates: start: 20120101
  2. DRUG THERAPY NOS [Concomitant]

REACTIONS (4)
  - BONE LOSS [None]
  - OFF LABEL USE [None]
  - INCORRECT DRUG ADMINISTRATION DURATION [None]
  - PHARYNGEAL OEDEMA [None]
